FAERS Safety Report 9787796 (Version 1)
Quarter: 2013Q4

REPORT INFORMATION
  Report Type: Spontaneous
  Country: US (occurrence: None)
  Receive Date: 20131227
  Receipt Date: 20131227
  Transmission Date: 20140711
  Serious: No
  Sender: FDA-Public Use
  Company Number: None

PATIENT
  Sex: 0

DRUGS (1)
  1. LYRICA 75 MG PFIZER [Suspect]
     Indication: PAIN
     Dosage: 1 PER DAY  ONCE DAILY BY MOUTH
     Route: 048
     Dates: start: 20131129, end: 20131201

REACTIONS (4)
  - Loss of consciousness [None]
  - Fall [None]
  - Dizziness [None]
  - Discomfort [None]
